FAERS Safety Report 6593939-2 (Version None)
Quarter: 2010Q1

REPORT INFORMATION
  Report Type: 
  Country: None (occurrence: None)
  Receive Date: 20100218
  Receipt Date: 20100218
  Transmission Date: 20100710
  Serious: Yes (Hospitalization)
  Sender: FDA-Public Use
  Company Number: None

PATIENT
  Age: 62 Year
  Sex: Male
  Weight: 89 kg

DRUGS (1)
  1. PIOGLITAZONE [Suspect]
     Indication: DEEP VEIN THROMBOSIS
     Dosage: 30 MG EVERY DAY PO
     Route: 048
     Dates: start: 20081205, end: 20090209

REACTIONS (1)
  - CARDIAC FAILURE [None]
